FAERS Safety Report 11668724 (Version 8)
Quarter: 2017Q4

REPORT INFORMATION
  Report Type: Report from Study
  Country: US (occurrence: US)
  Receive Date: 20151027
  Receipt Date: 20171213
  Transmission Date: 20180320
  Serious: Yes (Death, Hospitalization)
  Sender: FDA-Public Use
  Company Number: US-ACTELION-A-NJ2015-126190

PATIENT
  Age: 73 Year
  Sex: Female
  Weight: 122.9 kg

DRUGS (3)
  1. TRACLEER [Suspect]
     Active Substance: BOSENTAN
     Indication: PULMONARY ARTERIAL HYPERTENSION
     Dosage: 62.5 MG, BID
     Route: 048
  2. OXYGEN. [Concomitant]
     Active Substance: OXYGEN
     Dosage: 4 L, UNK
  3. ADCIRCA [Concomitant]
     Active Substance: TADALAFIL

REACTIONS (20)
  - Endoscopic retrograde cholangiopancreatography [Unknown]
  - Therapy non-responder [Unknown]
  - Localised oedema [Unknown]
  - Dialysis [Unknown]
  - Gout [Unknown]
  - Drug hypersensitivity [Unknown]
  - Weight decreased [Unknown]
  - Procedural hypotension [Unknown]
  - Cholelithotomy [Unknown]
  - Intestinal stent insertion [Unknown]
  - Renal disorder [Unknown]
  - Oedema peripheral [Unknown]
  - Fluid retention [Unknown]
  - Face oedema [Unknown]
  - Death [Fatal]
  - Cholelithiasis [Unknown]
  - Renal failure [Unknown]
  - Chronic kidney disease [Unknown]
  - Loss of consciousness [Unknown]
  - Dyspnoea [Unknown]

NARRATIVE: CASE EVENT DATE: 20171027
